FAERS Safety Report 5208648-1 (Version None)
Quarter: 2007Q1

REPORT INFORMATION
  Report Type: 
  Country: None (occurrence: None)
  Receive Date: 20070116
  Receipt Date: 20070109
  Transmission Date: 20070707
  Serious: Yes (Life-Threatening, Hospitalization)
  Sender: FDA-Public Use
  Company Number: PHBS2007DK00807

PATIENT
  Age: 68 Year
  Sex: Female

DRUGS (3)
  1. COZAAR [Concomitant]
  2. IMUZOP [Concomitant]
  3. DICLOFENAC SODIUM [Suspect]
     Indication: ARTHRALGIA
     Dosage: 50 MG, PRN
     Route: 048
     Dates: start: 20061129, end: 20061129

REACTIONS (3)
  - CONFUSIONAL STATE [None]
  - FACE OEDEMA [None]
  - RESPIRATORY DISTRESS [None]
